FAERS Safety Report 7664427-7 (Version None)
Quarter: 2011Q3

REPORT INFORMATION
  Report Type: 
  Country: None (occurrence: None)
  Receive Date: 20110806
  Receipt Date: 20110411
  Transmission Date: 20111222
  Serious: No
  Sender: FDA-Public Use
  Company Number: US-ABBOTT-11P-163-0700146-00

PATIENT
  Sex: Male
  Weight: 122.58 kg

DRUGS (8)
  1. NIASPAN [Suspect]
     Dosage: UNKNOWN
  2. METOPROLOL TARTRATE [Concomitant]
     Indication: CARDIAC DISORDER
  3. ISOSORBIDE DINITRATE [Concomitant]
     Indication: PRODUCT USED FOR UNKNOWN INDICATION
  4. LIPITOR [Concomitant]
     Indication: PRODUCT USED FOR UNKNOWN INDICATION
  5. NIASPAN [Suspect]
     Indication: BLOOD CHOLESTEROL
     Dates: start: 20110101
  6. NIASPAN [Suspect]
     Dosage: DAILY
     Dates: start: 20100101, end: 20100101
  7. PROTONIX [Concomitant]
     Indication: PRODUCT USED FOR UNKNOWN INDICATION
  8. RAMIPRIL [Concomitant]
     Indication: BLOOD PRESSURE

REACTIONS (4)
  - GENERALISED ERYTHEMA [None]
  - ABNORMAL SENSATION IN EYE [None]
  - FLUSHING [None]
  - NASOPHARYNGITIS [None]
